FAERS Safety Report 20618787 (Version 1)
Quarter: 2022Q1

REPORT INFORMATION
  Report Type: Spontaneous
  Country: FR (occurrence: FR)
  Receive Date: 20220322
  Receipt Date: 20220322
  Transmission Date: 20220423
  Serious: Yes (Hospitalization, Other)
  Sender: FDA-Public Use
  Company Number: FR-AFSSAPS-RN20220769

PATIENT
  Age: 57 Year
  Sex: Male
  Weight: 48 kg

DRUGS (2)
  1. LEVOFLOXACIN [Suspect]
     Active Substance: LEVOFLOXACIN
     Indication: Streptococcal bacteraemia
     Dosage: UNK
     Route: 065
     Dates: start: 20210908, end: 20210913
  2. RIFAMPIN [Suspect]
     Active Substance: RIFAMPIN
     Indication: Streptococcal bacteraemia
     Dosage: UNK
     Route: 065
     Dates: start: 20210904, end: 20210913

REACTIONS (1)
  - Mast cell activation syndrome [Recovered/Resolved]

NARRATIVE: CASE EVENT DATE: 20210911
